FAERS Safety Report 24579158 (Version 3)
Quarter: 2025Q3

REPORT INFORMATION
  Report Type: Report from Study
  Country: IN (occurrence: IN)
  Receive Date: 20241105
  Receipt Date: 20250728
  Transmission Date: 20251020
  Serious: Yes (Other)
  Sender: NOVARTIS
  Company Number: IN-002147023-NVSC2024IN045373

PATIENT
  Sex: Male

DRUGS (4)
  1. TASIGNA [Suspect]
     Active Substance: NILOTINIB
     Indication: Chronic myeloid leukaemia
     Dosage: 300 MG, BID
     Route: 048
     Dates: start: 20230724
  2. TASIGNA [Suspect]
     Active Substance: NILOTINIB
     Dosage: 300 MG, BID
     Route: 048
     Dates: start: 20230727
  3. TASIGNA [Suspect]
     Active Substance: NILOTINIB
     Dosage: 600 MG, BID
     Route: 048
  4. TASIGNA [Suspect]
     Active Substance: NILOTINIB
     Dosage: 300 MG, BID
     Route: 048

REACTIONS (10)
  - Cardiac dysfunction [Unknown]
  - Dyspnoea exertional [Unknown]
  - Arthralgia [Unknown]
  - Pleural effusion [Unknown]
  - Dyspepsia [Unknown]
  - Diarrhoea [Unknown]
  - Dyspnoea [Unknown]
  - Pain in extremity [Unknown]
  - Peripheral arterial occlusive disease [Unknown]
  - Gastritis [Unknown]

NARRATIVE: CASE EVENT DATE: 20240201
